FAERS Safety Report 23421063 (Version 1)
Quarter: 2024Q1

REPORT INFORMATION
  Report Type: Spontaneous
  Country: US (occurrence: US)
  Receive Date: 20240119
  Receipt Date: 20240119
  Transmission Date: 20240410
  Serious: No
  Sender: FDA-Public Use
  Company Number: US-BAYER-2024A011013

PATIENT
  Age: 78 Year
  Sex: Male

DRUGS (7)
  1. MIRALAX [Suspect]
     Active Substance: POLYETHYLENE GLYCOL 3350
     Indication: Gastrointestinal disorder
     Dosage: 1 CAPFULL DOSE
     Route: 048
     Dates: start: 20240116, end: 20240116
  2. ELIQUIS [Concomitant]
     Active Substance: APIXABAN
     Dosage: TWICE A DAY
  3. RIFAXIMIN [Concomitant]
     Active Substance: RIFAXIMIN
     Dosage: TWICE A DAY
  4. ATORVASTATIN [Concomitant]
     Active Substance: ATORVASTATIN
  5. LEVOTHYROXINE [Concomitant]
     Active Substance: LEVOTHYROXINE\LEVOTHYROXINE SODIUM
     Dosage: TWICE DAILY
  6. ANSI [Concomitant]
  7. LACOSAMIDE [Concomitant]
     Active Substance: LACOSAMIDE
     Dosage: TWICE DAILY

REACTIONS (1)
  - Expired product administered [Recovered/Resolved]

NARRATIVE: CASE EVENT DATE: 20240116
